FAERS Safety Report 12708453 (Version 1)
Quarter: 2016Q3

REPORT INFORMATION
  Report Type: Spontaneous
  Country: CH (occurrence: CH)
  Receive Date: 20160901
  Receipt Date: 20160901
  Transmission Date: 20161109
  Serious: Yes (Other)
  Sender: FDA-Public Use
  Company Number: CH-GLAXOSMITHKLINE-CH2016GSK124546

PATIENT
  Age: 35 Year
  Sex: Female

DRUGS (1)
  1. NEOTIGASON [Suspect]
     Active Substance: ACITRETIN
     Indication: PSORIASIS
     Dosage: 10 MG, QD
     Route: 050
     Dates: start: 201511

REACTIONS (2)
  - Exposure via father [Unknown]
  - Abortion induced [Unknown]

NARRATIVE: CASE EVENT DATE: 20160304
